FAERS Safety Report 5447764-6 (Version None)
Quarter: 2007Q3

REPORT INFORMATION
  Report Type: 
  Country: None (occurrence: None)
  Receive Date: 20070910
  Receipt Date: 20070823
  Transmission Date: 20080115
  Serious: Yes (Other)
  Sender: FDA-Public Use
  Company Number: GB-ROCHE-507156

PATIENT
  Age: 59 Year
  Sex: Female
  Weight: 108 kg

DRUGS (6)
  1. XENICAL [Suspect]
     Indication: OBESITY
     Route: 048
     Dates: start: 20061124
  2. UNSPECIFIED DRUG [Concomitant]
     Indication: BLOOD PRESSURE
  3. LEVOTHYROXINE SODIUM [Concomitant]
     Indication: THYROID DISORDER
     Dates: start: 19850101
  4. SERETIDE [Concomitant]
     Route: 055
  5. ISOSORBIDE DINITRATE [Concomitant]
  6. METFORMIN HCL [Concomitant]

REACTIONS (4)
  - ARTHRITIS [None]
  - ASTHMA [None]
  - MYOCARDIAL INFARCTION [None]
  - THROMBOSIS [None]
